FAERS Safety Report 23641480 (Version 1)
Quarter: 2024Q1

REPORT INFORMATION
  Report Type: Spontaneous
  Country: US (occurrence: US)
  Receive Date: 20240318
  Receipt Date: 20240318
  Transmission Date: 20240410
  Serious: Yes (Hospitalization)
  Sender: FDA-Public Use
  Company Number: US-RECORDATI RARE DISEASE INC.-2024001637

PATIENT

DRUGS (1)
  1. ISTURISA [Suspect]
     Active Substance: OSILODROSTAT PHOSPHATE
     Indication: Product used for unknown indication

REACTIONS (4)
  - Mineralocorticoid deficiency [Unknown]
  - Hyperkalaemia [Unknown]
  - Blood aldosterone decreased [Unknown]
  - Renin increased [Unknown]
